FAERS Safety Report 7831719-8 (Version None)
Quarter: 2011Q4

REPORT INFORMATION
  Report Type: 
  Country: None (occurrence: None)
  Receive Date: 20111019
  Receipt Date: 20111010
  Transmission Date: 20120403
  Serious: Yes (Life-Threatening, Hospitalization)
  Sender: FDA-Public Use
  Company Number: AUR-APL-2011-05193

PATIENT
  Age: 69 Year
  Sex: Female

DRUGS (6)
  1. FLUOXETINE [Suspect]
     Indication: DEPRESSION
     Dosage: (20 MG)
  2. IMIPRAMINE [Concomitant]
  3. LEVOTHYROXINE SODIUM [Concomitant]
  4. TOLTERODINE TARTRATE(TOLTERODINE L-TARTRATE) [Concomitant]
  5. NAPROXEN [Suspect]
     Indication: ARTHRALGIA
     Dosage: (500 MG),ORAL
     Route: 048
     Dates: start: 19971224, end: 20110905
  6. ACETAMINOPHEN W/ CODEINE [Concomitant]

REACTIONS (6)
  - GASTRIC ULCER [None]
  - HAEMOGLOBIN DECREASED [None]
  - MALAISE [None]
  - DIZZINESS [None]
  - HAEMATEMESIS [None]
  - UPPER GASTROINTESTINAL HAEMORRHAGE [None]
